FAERS Safety Report 9198363 (Version 1)
Quarter: 2013Q1

REPORT INFORMATION
  Report Type: Spontaneous
  Country: US (occurrence: None)
  Receive Date: 20130327
  Receipt Date: 20130327
  Transmission Date: 20140127
  Serious: Yes (Other)
  Sender: FDA-Public Use
  Company Number: None

PATIENT
  Sex: 0

DRUGS (1)
  1. ENBREL 50 MG AMGEN/PFIZER [Suspect]
     Indication: PSORIASIS
     Route: 050

REACTIONS (5)
  - Dyspnoea [None]
  - Chest pain [None]
  - Pain in jaw [None]
  - Pain in extremity [None]
  - Rash pustular [None]
